FAERS Safety Report 8957446 (Version 2)
Quarter: 2012Q4

REPORT INFORMATION
  Report Type: Report from Study
  Country: CA (occurrence: CA)
  Receive Date: 20121211
  Receipt Date: 20121221
  Transmission Date: 20130627
  Serious: Yes (Other)
  Sender: FDA-Public Use
  Company Number: PHHY2012CA113345

PATIENT
  Age: 52 Year
  Sex: Female

DRUGS (4)
  1. CLOZARIL [Suspect]
     Indication: SCHIZOPHRENIA
     Dosage: 200 mg, QD
     Route: 048
  2. DIVALPROEX SODIUM [Concomitant]
     Dosage: 500 mg, BID
  3. ARTHROTEC [Concomitant]
     Dosage: 50 UKN, TID
  4. UNIPHYL [Concomitant]
     Dosage: 400 mg, QHS

REACTIONS (3)
  - Electrocardiogram ST segment abnormal [Not Recovered/Not Resolved]
  - Left atrial dilatation [Not Recovered/Not Resolved]
  - Sinus tachycardia [Not Recovered/Not Resolved]
